FAERS Safety Report 12289367 (Version 1)
Quarter: 2016Q2

REPORT INFORMATION
  Report Type: Spontaneous
  Country: US (occurrence: None)
  Receive Date: 20160420
  Receipt Date: 20160420
  Transmission Date: 20160815
  Serious: Yes (Disabling)
  Sender: FDA-Public Use
  Company Number: None

PATIENT
  Age: 48 Year
  Sex: Male
  Weight: 81.65 kg

DRUGS (10)
  1. MAGNESIUM [Concomitant]
     Active Substance: MAGNESIUM
  2. LOSARTAN POTASSIUM. [Suspect]
     Active Substance: LOSARTAN POTASSIUM
     Indication: BLOOD PRESSURE MEASUREMENT
     Route: 048
     Dates: start: 20150626, end: 20150930
  3. CINNAMON. [Concomitant]
     Active Substance: CINNAMON
  4. FOCOLIC ACID [Concomitant]
  5. LISINAPRIL [Concomitant]
  6. FISH OIL [Concomitant]
     Active Substance: FISH OIL
  7. B [Concomitant]
  8. APLENZINE [Concomitant]
  9. TURMERIC [Concomitant]
     Active Substance: TURMERIC
  10. INNOSITOL [Concomitant]

REACTIONS (3)
  - Deafness unilateral [None]
  - Hyperacusis [None]
  - Tinnitus [None]

NARRATIVE: CASE EVENT DATE: 20150812
